FAERS Safety Report 8557102-8 (Version None)
Quarter: 2012Q3

REPORT INFORMATION
  Report Type: 
  Country: None (occurrence: None)
  Receive Date: 20120726
  Receipt Date: 20120726
  Transmission Date: 20120928
  Serious: No
  Sender: FDA-Public Use
  Company Number: None

PATIENT
  Age: 60 Year
  Sex: Male
  Weight: 80.5 kg

DRUGS (2)
  1. RIBAVIRIN [Suspect]
     Indication: HEPATITIS C
     Dosage: 1000 MG PO
     Route: 048
     Dates: start: 20120405, end: 20120711
  2. BOCEPREVIR [Suspect]
     Indication: HEPATITIS C
     Dosage: 800 MG PO
     Route: 048
     Dates: start: 20120621, end: 20120711

REACTIONS (5)
  - HYPOTENSION [None]
  - RASH [None]
  - ANAEMIA [None]
  - FATIGUE [None]
  - DIZZINESS [None]
